FAERS Safety Report 5880182-5 (Version None)
Quarter: 2008Q3

REPORT INFORMATION
  Report Type: 
  Country: None (occurrence: None)
  Receive Date: 20080909
  Receipt Date: 20080909
  Transmission Date: 20090109
  Serious: Yes (Hospitalization)
  Sender: FDA-Public Use
  Company Number: None

PATIENT
  Age: 58 Year
  Sex: Male
  Weight: 90.7194 kg

DRUGS (1)
  1. ENBREL [Suspect]
     Indication: PSORIATIC ARTHROPATHY
     Dosage: 50MG.  ONCE WEEKLY  SQ
     Route: 058
     Dates: start: 20080518, end: 20080818

REACTIONS (2)
  - ARTHRITIS BACTERIAL [None]
  - SEPSIS [None]
